FAERS Safety Report 23060035 (Version 4)
Quarter: 2025Q2

REPORT INFORMATION
  Report Type: Report from Study
  Country: US (occurrence: US)
  Receive Date: 20231012
  Receipt Date: 20250630
  Transmission Date: 20250717
  Serious: Yes (Other)
  Sender: EMD SERONO INC
  Company Number: US-Merck Healthcare KGaA-2023480678

PATIENT
  Sex: Female

DRUGS (3)
  1. MAVENCLAD [Suspect]
     Active Substance: CLADRIBINE
     Indication: Multiple sclerosis
     Dates: start: 20220531
  2. MAVENCLAD [Suspect]
     Active Substance: CLADRIBINE
     Dates: end: 20220715
  3. MAVENCLAD [Suspect]
     Active Substance: CLADRIBINE
     Dates: start: 20230904, end: 20230908

REACTIONS (8)
  - Leukaemia [Unknown]
  - Neoplasm malignant [Unknown]
  - Oropharyngeal pain [Unknown]
  - Lymphadenopathy [Unknown]
  - Fatigue [Not Recovered/Not Resolved]
  - Somnolence [Unknown]
  - Rash [Not Recovered/Not Resolved]
  - Pruritus [Unknown]
